FAERS Safety Report 7658139-3 (Version None)
Quarter: 2011Q3

REPORT INFORMATION
  Report Type: 
  Country: None (occurrence: None)
  Receive Date: 20110805
  Receipt Date: 20110726
  Transmission Date: 20111222
  Serious: Yes (Hospitalization, Other)
  Sender: FDA-Public Use
  Company Number: CA-JNJFOC-20110501539

PATIENT
  Sex: Male

DRUGS (3)
  1. SIMPONI [Suspect]
     Indication: ANKYLOSING SPONDYLITIS
     Route: 058
     Dates: start: 20110418
  2. SIMPONI [Suspect]
     Route: 058
     Dates: start: 20100618
  3. SIMPONI [Suspect]
     Route: 058
     Dates: start: 20110618

REACTIONS (1)
  - CARDIAC MURMUR [None]
